FAERS Safety Report 9018324 (Version 1)
Quarter: 2013Q1

REPORT INFORMATION
  Report Type: Spontaneous
  Country: US (occurrence: None)
  Receive Date: 20130111
  Receipt Date: 20130111
  Transmission Date: 20140127
  Serious: Yes (Hospitalization)
  Sender: FDA-Public Use
  Company Number: None

PATIENT
  Age: 88 Year
  Sex: Male
  Weight: 84.5 kg

DRUGS (14)
  1. COUMADIN [Suspect]
     Dosage: PO
     Route: 048
  2. XARELTO [Suspect]
     Indication: ATRIAL FIBRILLATION
     Dosage: 15MG DAILY PO
     Route: 048
  3. COLACE [Concomitant]
  4. METOPROLOL [Concomitant]
  5. METFORMIN [Concomitant]
  6. MOM [Concomitant]
  7. CELEXA [Concomitant]
  8. XALATAN [Concomitant]
  9. AZOPT [Concomitant]
  10. PERCOCET [Concomitant]
  11. PROVENTIL [Concomitant]
  12. NTG [Concomitant]
  13. DULCOLAX [Concomitant]
  14. PHENERGAN [Concomitant]

REACTIONS (4)
  - Myocardial infarction [None]
  - International normalised ratio increased [None]
  - Hepatic failure [None]
  - Shock [None]
